FAERS Safety Report 5596658-4 (Version None)
Quarter: 2007Q4

REPORT INFORMATION
  Report Type: 
  Country: None (occurrence: None)
  Receive Date: 20071220
  Receipt Date: 20070305
  Transmission Date: 20080405
  Serious: Yes (Other)
  Sender: FDA-Public Use
  Company Number: US-JNJFOC-20070301554

PATIENT
  Age: 33 Year
  Sex: Female

DRUGS (2)
  1. ORTHO TRI-CYCLEN [Suspect]
     Indication: CONTRACEPTION
     Dosage: 1 DOSE (S), 1 IN 1 DAY, ORAL
     Route: 048
  2. HYDROXYCUT (GENERAL NUTRIENTS) TABLET [Concomitant]

REACTIONS (3)
  - DRUG EXPOSURE DURING PREGNANCY [None]
  - INAPPROPRIATE SCHEDULE OF DRUG ADMINISTRATION [None]
  - PREGNANCY ON ORAL CONTRACEPTIVE [None]
